FAERS Safety Report 23236277 (Version 1)
Quarter: 2023Q4

REPORT INFORMATION
  Report Type: Spontaneous
  Country: US (occurrence: US)
  Receive Date: 20231128
  Receipt Date: 20231128
  Transmission Date: 20240110
  Serious: Yes (Hospitalization, Other)
  Sender: FDA-Public Use
  Company Number: US-SUN PHARMACEUTICAL INDUSTRIES LTD-2023R1-420454

PATIENT
  Age: 29 Year
  Sex: Female

DRUGS (1)
  1. CALCITRIOL [Suspect]
     Active Substance: CALCITRIOL
     Indication: Hypocalcaemia
     Dosage: UNK
     Route: 065

REACTIONS (2)
  - Posterior reversible encephalopathy syndrome [Recovering/Resolving]
  - Hypercalcaemia [Not Recovered/Not Resolved]
